FAERS Safety Report 18065737 (Version 1)
Quarter: 2020Q3

REPORT INFORMATION
  Report Type: Spontaneous
  Country: CH (occurrence: CH)
  Receive Date: 20200724
  Receipt Date: 20200724
  Transmission Date: 20201103
  Serious: Yes (Life-Threatening, Hospitalization)
  Sender: FDA-Public Use
  Company Number: CH-HRARD-202000629

PATIENT
  Age: 78 Year
  Sex: Female
  Weight: 85 kg

DRUGS (17)
  1. MICARDIS PLUS [Concomitant]
     Active Substance: HYDROCHLOROTHIAZIDE\TELMISARTAN
     Indication: PRODUCT USED FOR UNKNOWN INDICATION
     Dosage: STRENGTH: 80/25 MG??REPLACED BY ATACAND
     Dates: end: 20200612
  2. DAFALGAN [Concomitant]
     Active Substance: ACETAMINOPHEN
     Dosage: STRENGTH: 1 G, (1?1?1?1), AS PRN MEDICATION
  3. KCL HAUSMANN [Concomitant]
     Indication: PRODUCT USED FOR UNKNOWN INDICATION
     Dosage: 10 MMOL, ADDITIONALLY NACL, KCL, POTASSIUM PHOSPHATE AS REQUIRED
     Dates: start: 20200526
  4. ALDACTONE [Concomitant]
     Active Substance: SPIRONOLACTONE
     Indication: PRODUCT USED FOR UNKNOWN INDICATION
     Dosage: 25 MG OR 50 MG (AS REPORTED)
     Dates: start: 202005
  5. METOPIRON [Suspect]
     Active Substance: METYRAPONE
     Indication: GLUCOCORTICOIDS DECREASED
     Dosage: AUTHORISATION NUMBER: 7157??STRENGTH: 250 MG??2?2?2?2 PER DAY
     Dates: start: 20200618, end: 20200626
  6. METOPIRON [Suspect]
     Active Substance: METYRAPONE
     Indication: GLUCOCORTICOIDS DECREASED
     Dosage: STRENGTH: 250 MG??2?2?2 PER DAY
     Dates: start: 20200614, end: 20200617
  7. NOVALGIN [Concomitant]
     Dosage: STRENGTH: 500 MG, (2?2?2?2), AS PRN MEDICATION
  8. PANTOZOL 40 MG [Concomitant]
     Indication: PRODUCT USED FOR UNKNOWN INDICATION
     Dates: start: 20200526
  9. METFORMIN HYDROCHLORIDE 500 MG [Concomitant]
     Indication: PRODUCT USED FOR UNKNOWN INDICATION
     Dosage: 0?0?1?0 PER DAY
     Dates: start: 202002
  10. AMLODIPINE BESILATE 5 MG [Concomitant]
     Indication: PRODUCT USED FOR UNKNOWN INDICATION
     Dosage: 1?0?1?0 PER DAY
  11. ACTOS [Concomitant]
     Active Substance: PIOGLITAZONE HYDROCHLORIDE
     Indication: PRODUCT USED FOR UNKNOWN INDICATION
     Dosage: REPLACED BY LANTUS
     Dates: start: 202002, end: 20200611
  12. TORASEMIDE 10 MG [Concomitant]
     Active Substance: TORSEMIDE
     Indication: PRODUCT USED FOR UNKNOWN INDICATION
     Dosage: 1?0?0?0 PER DAY
  13. HUMALOG MIX [Concomitant]
     Active Substance: INSULIN LISPRO
     Indication: PRODUCT USED FOR UNKNOWN INDICATION
     Dosage: 28 UI PER DAY, 16?0?12?0 (AT 08:00 /19:00)
     Route: 058
     Dates: start: 202002
  14. BILOL [Concomitant]
     Active Substance: BISOPROLOL
     Indication: PRODUCT USED FOR UNKNOWN INDICATION
     Dosage: REPLACED BY CONCOR AT 10 MG
     Dates: end: 20200526
  15. ATORVASTATINE 10 MG [Concomitant]
     Active Substance: ATORVASTATIN
     Indication: PRODUCT USED FOR UNKNOWN INDICATION
  16. MAGNESIOCARD [Concomitant]
     Active Substance: MAGNESIUM ASPARTATE HYDROCHLORIDE
     Dosage: 7.5 MMOL EFFERVESCENT,??1?0?0?0 PER DAY
  17. FRAGMIN [Concomitant]
     Active Substance: DALTEPARIN SODIUM
     Indication: PRODUCT USED FOR UNKNOWN INDICATION
     Dosage: 5000 IU PER DAY
     Dates: start: 20200526

REACTIONS (2)
  - Adrenal insufficiency [Recovered/Resolved]
  - Septic shock [Unknown]

NARRATIVE: CASE EVENT DATE: 20200616
